FAERS Safety Report 12676384 (Version 1)
Quarter: 2016Q3

REPORT INFORMATION
  Report Type: Spontaneous
  Country: US (occurrence: None)
  Receive Date: 20160822
  Receipt Date: 20160822
  Transmission Date: 20161109
  Serious: Yes (Hospitalization)
  Sender: FDA-Public Use
  Company Number: None

PATIENT
  Age: 76 Year
  Sex: Male
  Weight: 102.1 kg

DRUGS (1)
  1. IRINOTECAN [Suspect]
     Active Substance: IRINOTECAN
     Indication: COLORECTAL CANCER
     Route: 042
     Dates: start: 20160505, end: 20160712

REACTIONS (4)
  - International normalised ratio increased [None]
  - Hypovolaemia [None]
  - Acute kidney injury [None]
  - Diarrhoea [None]

NARRATIVE: CASE EVENT DATE: 20160718
